FAERS Safety Report 5371958-1 (Version None)
Quarter: 2007Q2

REPORT INFORMATION
  Report Type: 
  Country: None (occurrence: None)
  Receive Date: 20070627
  Receipt Date: 20070615
  Transmission Date: 20071010
  Serious: Yes (Hospitalization)
  Sender: FDA-Public Use
  Company Number: AU-BAXTER-2007BH004867

PATIENT
  Sex: Male
  Weight: 130 kg

DRUGS (1)
  1. EXTRANEAL [Suspect]
     Indication: PERITONEAL DIALYSIS
     Dosage: DOSE UNIT:UNKNOWN
     Route: 033

REACTIONS (3)
  - DEVICE INTERACTION [None]
  - HYPOGLYCAEMIA [None]
  - UNRESPONSIVE TO STIMULI [None]
